FAERS Safety Report 18049812 (Version 2)
Quarter: 2020Q3

REPORT INFORMATION
  Report Type: Spontaneous
  Country: EG (occurrence: EG)
  Receive Date: 20200721
  Receipt Date: 20200802
  Transmission Date: 20201103
  Serious: Yes (Life-Threatening, Hospitalization, Other)
  Sender: FDA-Public Use
  Company Number: EG-NOVOPROD-741147

PATIENT
  Age: 789 Month
  Sex: Female
  Weight: 81 kg

DRUGS (8)
  1. GALVUS MET [METFORMIN;VILDAGLIPTIN] [Concomitant]
     Indication: DIABETES MELLITUS
     Dosage: 1 TABLET FROM 4 YEARS
     Route: 065
  2. THIOTACID [Concomitant]
     Active Substance: .ALPHA.-LIPOIC ACID
     Indication: NEUROPATHY PERIPHERAL
     Dosage: 1 BEFORE LUNCH FROM 3YEARS
     Route: 065
  3. MILGA [Concomitant]
     Active Substance: BENFOTIAMINE\CYANOCOBALAMIN\PYRIDOXINE HYDROCHLORIDE
     Indication: NEUROPATHY PERIPHERAL
     Dosage: 3 TAB
     Route: 065
  4. CONTROLOC [Concomitant]
     Active Substance: PANTOPRAZOLE SODIUM
     Indication: GASTRIC ULCER
     Dosage: UNK,BEFORE BREAK FAST FROM 6 MONTHS
     Route: 065
  5. MIXTARD 30 HM PENFILL [Suspect]
     Active Substance: INSULIN HUMAN
     Indication: TYPE 2 DIABETES MELLITUS
     Dosage: 40 IU, QD (20?20?0) STARTED 6 YEARS AGO
     Route: 058
  6. EZAPRIL [Concomitant]
     Indication: PROPHYLAXIS
     Dosage: BEFORE LUNCH FROM 4 YEARS
     Route: 065
  7. GENUPHIL [Concomitant]
     Active Substance: CHONDROITIN SULFATE (BOVINE)\DIMETHYL SULFONE\GLUCOSAMINE SULFATE
     Indication: ARTHROPATHY
     Dosage: TWICE DAILY FROM 2 YEARS
     Route: 065
  8. CH ALPHA [Concomitant]
     Dosage: UNK , SINCE 2 YEARS
     Route: 065

REACTIONS (1)
  - Ovarian cancer [Recovered/Resolved with Sequelae]
